FAERS Safety Report 18935986 (Version 1)
Quarter: 2021Q1

REPORT INFORMATION
  Report Type: Spontaneous
  Country: HK (occurrence: HK)
  Receive Date: 20210224
  Receipt Date: 20210224
  Transmission Date: 20210420
  Serious: Yes (Hospitalization, Other)
  Sender: FDA-Public Use
  Company Number: HK-TEVA-2021-HK-1882310

PATIENT
  Age: 4 Year
  Sex: Female

DRUGS (18)
  1. ETOPOSIDE. [Suspect]
     Active Substance: ETOPOSIDE
     Indication: ACUTE MYELOID LEUKAEMIA
     Dosage: INDUCTION CHEMOTHERAPY; NOPHO?AML 2012 PROTOCOL
     Route: 041
  2. TRIMETHOPRIM/SULFAMETHOXAZOLE [Suspect]
     Active Substance: SULFAMETHOXAZOLE\TRIMETHOPRIM
     Indication: MYCOBACTERIUM ABSCESSUS INFECTION
     Dosage: TRIMETHOPRIM DOSAGE 10 MG/KG/DAY
     Route: 048
  3. CLOFAZIMINE [Suspect]
     Active Substance: CLOFAZIMINE
     Indication: MYCOBACTERIUM ABSCESSUS INFECTION
     Dosage: TWICE WEEKLY
     Route: 065
  4. VANCOMYCIN [Concomitant]
     Active Substance: VANCOMYCIN
     Indication: MYCOBACTERIUM ABSCESSUS INFECTION
     Dosage: ANTIBIOTIC?INFUSED CEMENT
     Route: 065
  5. GENTAMYCIN [Concomitant]
     Active Substance: GENTAMICIN
     Indication: MYCOBACTERIUM ABSCESSUS INFECTION
     Dosage: ANTIBIOTIC?INFUSED CEMENT
     Route: 065
  6. CYTARABINE. [Suspect]
     Active Substance: CYTARABINE
     Dosage: SINGLE DOSE
     Route: 037
  7. CLARITHROMYCIN. [Suspect]
     Active Substance: CLARITHROMYCIN
     Indication: MYCOBACTERIUM ABSCESSUS INFECTION
     Route: 048
  8. AMIKACIN. [Suspect]
     Active Substance: AMIKACIN
     Indication: MYCOBACTERIUM ABSCESSUS INFECTION
     Route: 042
  9. BEDAQUILINE [Suspect]
     Active Substance: BEDAQUILINE
     Indication: MYCOBACTERIUM ABSCESSUS INFECTION
     Dosage: THREE TIMES A WEEK
     Route: 065
  10. METHOTREXATE. [Suspect]
     Active Substance: METHOTREXATE
     Indication: ACUTE MYELOID LEUKAEMIA
     Dosage: INDUCTION CHEMOTHERAPY; NOPHO?AML 2012 PROTOCOL
     Route: 065
  11. THIOGUANINE [Suspect]
     Active Substance: THIOGUANINE
     Indication: ACUTE MYELOID LEUKAEMIA
     Dosage: ON DAYS 1?4 AND 15?18 OF THE 4 WEEKLY CYCLE
     Route: 048
  12. CLOFAZIMINE [Suspect]
     Active Substance: CLOFAZIMINE
     Indication: SALVAGE THERAPY
  13. CYTARABINE. [Suspect]
     Active Substance: CYTARABINE
     Indication: ACUTE MYELOID LEUKAEMIA
     Dosage: INDUCTION CHEMOTHERAPY; NOPHO?AML 2012 PROTOCOL
     Route: 041
  14. BEDAQUILINE [Suspect]
     Active Substance: BEDAQUILINE
     Indication: SALVAGE THERAPY
  15. DAUNOXOME [Suspect]
     Active Substance: DAUNORUBICIN CITRATE
     Indication: ACUTE MYELOID LEUKAEMIA
     Dosage: INDUCTION CHEMOTHERAPY; NOPHO?AML 2012 PROTOCOL
     Route: 041
  16. CEFOXITIN [Suspect]
     Active Substance: CEFOXITIN SODIUM
     Indication: MYCOBACTERIUM ABSCESSUS INFECTION
     Route: 042
  17. AMIKACIN. [Suspect]
     Active Substance: AMIKACIN
     Indication: MYCOBACTERIUM ABSCESSUS INFECTION
     Dosage: ANTIBIOTIC?INFUSED CEMENT
     Route: 065
  18. INTERFERON GAMMA NOS [Concomitant]
     Active Substance: INTERFERON GAMMA
     Indication: ACUTE MYELOID LEUKAEMIA
     Dosage: THREE TIMES A WEEK
     Route: 065

REACTIONS (6)
  - Off label use [Unknown]
  - Osteomyelitis [Recovered/Resolved]
  - Drug eruption [Recovering/Resolving]
  - Drug-induced liver injury [Recovering/Resolving]
  - Electrocardiogram QT prolonged [Recovered/Resolved]
  - Mycobacterium abscessus infection [Recovered/Resolved]
